FAERS Safety Report 20479585 (Version 1)
Quarter: 2022Q1

REPORT INFORMATION
  Report Type: Spontaneous
  Country: GB (occurrence: GB)
  Receive Date: 20220216
  Receipt Date: 20220216
  Transmission Date: 20220424
  Serious: Yes (Other)
  Sender: FDA-Public Use
  Company Number: None

PATIENT
  Age: 55 Year
  Sex: Female
  Weight: 64 kg

DRUGS (4)
  1. CELECOXIB [Suspect]
     Active Substance: CELECOXIB
     Indication: Rash pruritic
     Dosage: UNKNOWN
     Route: 048
     Dates: start: 20220204
  2. CELECOXIB [Concomitant]
     Active Substance: CELECOXIB
     Indication: Ill-defined disorder
     Dosage: TAKE TWO DAILY
     Dates: start: 20220129
  3. LANSOPRAZOLE [Concomitant]
     Active Substance: LANSOPRAZOLE
     Indication: Ill-defined disorder
     Dosage: TAKE 1 TABLET DAILY (FIRST THING IN THE MORNING)
     Dates: start: 20201201
  4. VAGIFEM [Concomitant]
     Active Substance: ESTRADIOL
     Indication: Ill-defined disorder
     Dosage: INSERT ONE TWICE A WEEK
     Dates: start: 20210818

REACTIONS (1)
  - Rash pruritic [Recovered/Resolved]

NARRATIVE: CASE EVENT DATE: 20220204
